FAERS Safety Report 11556843 (Version 1)
Quarter: 2015Q3

REPORT INFORMATION
  Report Type: Spontaneous
  Country: JP (occurrence: JP)
  Receive Date: 20150925
  Receipt Date: 20150925
  Transmission Date: 20151125
  Serious: Yes (Hospitalization, Other)
  Sender: FDA-Public Use
  Company Number: PHHY2015JP113508

PATIENT
  Age: 67 Year
  Sex: Female

DRUGS (2)
  1. CYCLOPHOSPHAMIDE. [Suspect]
     Active Substance: CYCLOPHOSPHAMIDE
     Indication: GRANULOMATOSIS WITH POLYANGIITIS
     Route: 065
  2. PREDNISOLONE. [Suspect]
     Active Substance: PREDNISOLONE
     Indication: GRANULOMATOSIS WITH POLYANGIITIS
     Route: 065

REACTIONS (6)
  - Pulmonary haemorrhage [Recovered/Resolved]
  - Lymphopenia [Recovered/Resolved]
  - Respiratory failure [Recovered/Resolved]
  - Pneumonia cytomegaloviral [Recovered/Resolved]
  - Hepatitis [Unknown]
  - Enterocolitis haemorrhagic [Unknown]
